FAERS Safety Report 6384493-9 (Version None)
Quarter: 2009Q3

REPORT INFORMATION
  Report Type: 
  Country: None (occurrence: None)
  Receive Date: 20090929
  Receipt Date: 20090923
  Transmission Date: 20100115
  Serious: Yes (Other)
  Sender: FDA-Public Use
  Company Number: SPV1-2009-01809

PATIENT
  Age: 47 Year
  Sex: Female
  Weight: 61 kg

DRUGS (6)
  1. FOSRENOL [Suspect]
     Indication: HYPERPHOSPHATAEMIA
     Dosage: 750 MG
     Dates: start: 20081204, end: 20090909
  2. CINACALCET (CINACALCET) [Concomitant]
  3. ALPHACALCIDOL (ALFACALCIDOL) [Concomitant]
  4. OMEPRAZOLE [Concomitant]
  5. AMOXYL (AMOXICILLIN) [Concomitant]
  6. CEPHALEXIN [Concomitant]

REACTIONS (2)
  - BLOOD PARATHYROID HORMONE INCREASED [None]
  - TOOTH FRACTURE [None]
